FAERS Safety Report 4709888-8 (Version None)
Quarter: 2005Q3

REPORT INFORMATION
  Report Type: 
  Country: None (occurrence: None)
  Receive Date: 20050708
  Receipt Date: 20050701
  Transmission Date: 20060218
  Serious: Yes (Life-Threatening, Hospitalization)
  Sender: FDA-Public Use
  Company Number: US-BRISTOL-MYERS SQUIBB COMPANY-13022595

PATIENT
  Sex: Male
  Weight: 64 kg

DRUGS (4)
  1. SUSTIVA [Suspect]
     Indication: HIV INFECTION
  2. ACYCLOVIR [Concomitant]
  3. DAPSONE [Concomitant]
  4. TRUVADA [Concomitant]

REACTIONS (1)
  - EMBOLISM [None]
